FAERS Safety Report 8988962 (Version 2)
Quarter: 2013Q1

REPORT INFORMATION
  Report Type: Spontaneous
  Country: US (occurrence: None)
  Receive Date: 20121220
  Receipt Date: 20130207
  Transmission Date: 20140127
  Serious: Yes (Other)
  Sender: FDA-Public Use
  Company Number: ZYD-12-AE-258

PATIENT
  Age: 29 Year
  Sex: Female

DRUGS (3)
  1. ATENOLOL [Suspect]
     Indication: CHEST PAIN
     Route: 048
     Dates: start: 20121211, end: 20121211
  2. ZYRTEC [Concomitant]
  3. ZANAFLEX [Concomitant]

REACTIONS (2)
  - Blindness transient [None]
  - Visual impairment [None]
